FAERS Safety Report 4632508-8 (Version None)
Quarter: 2005Q2

REPORT INFORMATION
  Report Type: 
  Country: None (occurrence: None)
  Receive Date: 20050411
  Receipt Date: 20050406
  Transmission Date: 20051028
  Serious: Yes (Death)
  Sender: FDA-Public Use
  Company Number: 05-01-0092

PATIENT
  Age: 37 Year
  Sex: Male
  Weight: 158.759 kg

DRUGS (15)
  1. CLOZAPINE [Suspect]
     Dosage: 100MG BID ORAL
     Route: 048
     Dates: start: 20021101, end: 20041101
  2. LORAZEPAM [Concomitant]
  3. ZOLOFT [Concomitant]
  4. ALLEGRA TABLETS 180 MG [Concomitant]
  5. BENZTROPINE MESYLATE TABLETS [Concomitant]
  6. CLONAZEPAM [Concomitant]
  7. FLUOXETINE [Concomitant]
  8. CLARITIN [Concomitant]
  9. SEROQUEL [Concomitant]
  10. ZYPREXA [Concomitant]
  11. TRILEPTAL TABLETS [Concomitant]
  12. TOBRADEX OPHTALMIC [Concomitant]
  13. PREDNISOLONE  OPHTHALMIC [Concomitant]
  14. PENICILLIN VK [Concomitant]
  15. CLARINEX TABLETS [Concomitant]

REACTIONS (3)
  - CARDIOMEGALY [None]
  - CARDIOMYOPATHY [None]
  - SUDDEN CARDIAC DEATH [None]
